FAERS Safety Report 18460247 (Version 1)
Quarter: 2020Q4

REPORT INFORMATION
  Report Type: Report from Study
  Country: CA (occurrence: CA)
  Receive Date: 20201103
  Receipt Date: 20201103
  Transmission Date: 20210114
  Serious: Yes (Other)
  Sender: FDA-Public Use
  Company Number: CA-AMGEN-CANSL2020177241

PATIENT
  Age: 88 Year
  Sex: Female

DRUGS (1)
  1. OTEZLA [Suspect]
     Active Substance: APREMILAST
     Indication: PSORIASIS
     Dosage: 30 MILLIGRAM, BID
     Route: 065
     Dates: start: 202010, end: 202010

REACTIONS (3)
  - Nausea [Unknown]
  - Haematemesis [Unknown]
  - Abdominal pain [Unknown]

NARRATIVE: CASE EVENT DATE: 202010
